FAERS Safety Report 6669503-3 (Version None)
Quarter: 2010Q2

REPORT INFORMATION
  Report Type: 
  Country: None (occurrence: None)
  Receive Date: 20100406
  Receipt Date: 20100331
  Transmission Date: 20101027
  Serious: Yes (Other)
  Sender: FDA-Public Use
  Company Number: PHHY2009DE53049

PATIENT
  Sex: Male
  Weight: 112 kg

DRUGS (13)
  1. ALISKIREN ALI+ [Suspect]
     Indication: HYPERTENSION
     Dosage: 300 MG/DAY
     Route: 048
     Dates: start: 20081211
  2. METOPROLOL TARTRATE [Suspect]
     Indication: HYPERTENSION
     Dosage: 200 MG/DAY
     Route: 048
     Dates: start: 20050712
  3. BLOPRESS PLUS [Suspect]
     Indication: HYPERTENSION
     Dosage: UNK
     Route: 048
     Dates: start: 20090728
  4. CARMEN [Suspect]
     Indication: HYPERTENSION
     Dosage: 20 MG/DAY
     Route: 048
     Dates: start: 20090107
  5. BETA BLOCKING AGENTS [Concomitant]
     Indication: HYPERTENSION
  6. DIURETICS [Concomitant]
     Indication: HYPERTENSION
  7. PLATELET AGGREGATION INHIBITORS [Concomitant]
  8. FUROSEMID [Concomitant]
     Indication: HYPERTENSION
     Dosage: 40 MG/DAY
     Route: 048
     Dates: start: 20080403
  9. ASPIRIN [Concomitant]
     Indication: CORONARY ARTERY DISEASE
     Dosage: 100 MG/DAY
     Route: 048
     Dates: start: 20051116
  10. ALLOPURINOL [Concomitant]
     Indication: HYPERURICAEMIA
     Dosage: 300 MG/DAY
     Route: 048
     Dates: start: 20010115
  11. SIMVASTATIN [Concomitant]
     Indication: HYPERLIPIDAEMIA
     Dosage: 20 MG/DAY
     Route: 048
     Dates: start: 20050712
  12. STATIN [Concomitant]
  13. CALCIUM ANTAGONIST [Concomitant]
     Indication: HYPERTENSION

REACTIONS (2)
  - DIABETES MELLITUS [None]
  - HYPERTENSIVE CRISIS [None]
